FAERS Safety Report 8707584 (Version 2)
Quarter: 2013Q4

REPORT INFORMATION
  Report Type: Spontaneous
  Country: US (occurrence: US)
  Receive Date: 20120805
  Receipt Date: 20131031
  Transmission Date: 20140711
  Serious: No
  Sender: FDA-Public Use
  Company Number: US-009507513-2012SP030241

PATIENT
  Age: 43 Year
  Sex: Female
  Weight: 65.77 kg

DRUGS (1)
  1. CLARITIN LIQUIGELS [Suspect]
     Dosage: 20 MG, QD
     Route: 048
     Dates: start: 20120310, end: 20120315

REACTIONS (2)
  - No therapeutic response [Unknown]
  - Overdose [Unknown]
